FAERS Safety Report 10016809 (Version 5)
Quarter: 2014Q3

REPORT INFORMATION
  Report Type: Spontaneous
  Country: BR (occurrence: BR)
  Receive Date: 20140318
  Receipt Date: 20140703
  Transmission Date: 20150326
  Serious: Yes (Other)
  Sender: FDA-Public Use
  Company Number: PHHY2014BR030016

PATIENT
  Sex: Female

DRUGS (2)
  1. HIGROTON [Suspect]
     Active Substance: CHLORTHALIDONE
     Dosage: 12.5 MG, UNK
  2. RASILEZ [Suspect]
     Active Substance: ALISKIREN
     Dosage: 160 MG, UNK

REACTIONS (1)
  - Hypertension [Recovered/Resolved]
